FAERS Safety Report 8790582 (Version 1)
Quarter: 2012Q4

REPORT INFORMATION
  Report Type: Spontaneous
  Country: US (occurrence: None)
  Receive Date: 20120912
  Receipt Date: 20120912
  Transmission Date: 20130627
  Serious: Yes (Hospitalization)
  Sender: FDA-Public Use
  Company Number: None

PATIENT
  Age: 72 Year
  Sex: Male
  Weight: 84.5 kg

DRUGS (1)
  1. WARFARIN [Suspect]
     Indication: ATRIAL FIBRILLATION
     Dates: start: 20091009, end: 20120217

REACTIONS (7)
  - Fall [None]
  - Palpitations [None]
  - Back pain [None]
  - Subdural haematoma [None]
  - Haemorrhage [None]
  - Barrett^s oesophagus [None]
  - Condition aggravated [None]
